FAERS Safety Report 5105074-0 (Version None)
Quarter: 2006Q3

REPORT INFORMATION
  Report Type: 
  Country: None (occurrence: None)
  Receive Date: 20060911
  Receipt Date: 20060809
  Transmission Date: 20061208
  Serious: Yes (Hospitalization)
  Sender: FDA-Public Use
  Company Number: 2006BI011229

PATIENT
  Age: 56 Year
  Sex: Female

DRUGS (5)
  1. AVONEX [Suspect]
     Indication: MULTIPLE SCLEROSIS
     Dosage: 30 UG;QW;IM
     Route: 030
     Dates: start: 20010101
  2. ADVAIR DISKUS 100/50 [Concomitant]
  3. ALBUTEROL [Concomitant]
  4. SINGULAIR [Concomitant]
  5. LIPITOR [Concomitant]

REACTIONS (13)
  - ABDOMINAL PAIN UPPER [None]
  - CHEST DISCOMFORT [None]
  - DRY MOUTH [None]
  - GASTRIC PH DECREASED [None]
  - INJECTION SITE HYPERSENSITIVITY [None]
  - INJECTION SITE URTICARIA [None]
  - LOBAR PNEUMONIA [None]
  - MUSCLE TIGHTNESS [None]
  - NASOPHARYNGITIS [None]
  - PLEURAL EFFUSION [None]
  - POLLAKIURIA [None]
  - THYROID DISORDER [None]
  - TONGUE DRY [None]
